FAERS Safety Report 4715333-9 (Version None)
Quarter: 2005Q3

REPORT INFORMATION
  Report Type: 
  Country: None (occurrence: None)
  Receive Date: 20050715
  Receipt Date: 20050707
  Transmission Date: 20060218
  Serious: Yes (Other)
  Sender: FDA-Public Use
  Company Number: US-MERCK-0507USA01219

PATIENT
  Sex: Female

DRUGS (2)
  1. VIOXX [Suspect]
     Route: 048
     Dates: start: 20020101, end: 20041001
  2. CELEBREX [Concomitant]
     Route: 065
     Dates: start: 20030101, end: 20050701

REACTIONS (3)
  - CEREBROVASCULAR ACCIDENT [None]
  - MYOCARDIAL INFARCTION [None]
  - THROMBOSIS [None]
